FAERS Safety Report 7264679-1 (Version None)
Quarter: 2011Q1

REPORT INFORMATION
  Report Type: 
  Country: None (occurrence: None)
  Receive Date: 20110131
  Receipt Date: 20110126
  Transmission Date: 20110831
  Serious: No
  Sender: FDA-Public Use
  Company Number: US-PFIZER INC-2011003570

PATIENT
  Sex: Male
  Weight: 79.365 kg

DRUGS (1)
  1. NICOTROL [Suspect]
     Indication: SMOKING CESSATION THERAPY
     Dosage: UNK
     Dates: start: 20110104, end: 20110107

REACTIONS (6)
  - DIARRHOEA [None]
  - INSOMNIA [None]
  - COUGH [None]
  - DIZZINESS [None]
  - MALAISE [None]
  - PRODUCT TASTE ABNORMAL [None]
